FAERS Safety Report 4432828-6 (Version None)
Quarter: 2004Q3

REPORT INFORMATION
  Report Type: 
  Country: None (occurrence: None)
  Receive Date: 20040823
  Receipt Date: 20040810
  Transmission Date: 20050211
  Serious: Yes (Other)
  Sender: FDA-Public Use
  Company Number: 2004052009

PATIENT
  Age: 10 Year

DRUGS (1)
  1. UNASYN [Suspect]
     Indication: LOWER RESPIRATORY TRACT INFLAMMATION
     Dosage: (3 IN 1 D) INTRAVENOUS
     Route: 042

REACTIONS (1)
  - STAPHYLOCOCCAL INFECTION [None]
